FAERS Safety Report 9419090 (Version 2)
Quarter: 2013Q3

REPORT INFORMATION
  Report Type: Spontaneous
  Country: DE (occurrence: DE)
  Receive Date: 20130725
  Receipt Date: 20130808
  Transmission Date: 20140515
  Serious: Yes (Other)
  Sender: FDA-Public Use
  Company Number: DE-AMGEN-DEUSP2013051749

PATIENT
  Age: 63 Year
  Sex: Female
  Weight: 82 kg

DRUGS (7)
  1. ENBREL [Suspect]
     Indication: PSORIATIC ARTHROPATHY
     Dosage: 50 MG, WEEKLY
     Route: 058
     Dates: start: 20130409, end: 20130717
  2. LEFLUNOMIDE [Concomitant]
     Indication: PSORIATIC ARTHROPATHY
     Dosage: 20 MG, DAILY
     Route: 048
  3. PREDNISOLON                        /00016201/ [Concomitant]
     Dosage: 5 MG, DAILY
     Route: 048
  4. BISOPROLOL [Concomitant]
     Dosage: 5 MG, DAILY
     Route: 048
  5. MICARDIS PLUS [Concomitant]
     Dosage: 80 MG / 12.5 MG
  6. PANTOPRAZOL [Concomitant]
     Dosage: 40 UNK, UNK
  7. VIGANTOLETTEN [Concomitant]
     Dosage: UNK

REACTIONS (3)
  - Injection site injury [Not Recovered/Not Resolved]
  - Wound haemorrhage [Not Recovered/Not Resolved]
  - Inflammation of wound [Not Recovered/Not Resolved]
